FAERS Safety Report 5081085-9 (Version None)
Quarter: 2006Q3

REPORT INFORMATION
  Report Type: 
  Country: None (occurrence: None)
  Receive Date: 20060720
  Receipt Date: 20060103
  Transmission Date: 20061208
  Serious: Yes (Other)
  Sender: FDA-Public Use
  Company Number: 2006002557

PATIENT
  Age: 7 Year
  Sex: Male
  Weight: 89.3586 kg

DRUGS (2)
  1. CELEBREX [Suspect]
     Indication: HEADACHE
     Dosage: 100 MG (100 MG, 1 IN 1 D), ORAL
     Route: 048
     Dates: start: 20050101
  2. ATENOLOL [Concomitant]

REACTIONS (1)
  - BLOOD GLUCOSE INCREASED [None]
